FAERS Safety Report 16627335 (Version 4)
Quarter: 2020Q2

REPORT INFORMATION
  Report Type: Report from Study
  Country: BR (occurrence: BR)
  Receive Date: 20190724
  Receipt Date: 20200601
  Transmission Date: 20200713
  Serious: Yes (Life-Threatening, Hospitalization, Other)
  Sender: FDA-Public Use
  Company Number: BR-ALEXION PHARMACEUTICALS INC-A201911098

PATIENT
  Age: 16 Year
  Sex: Female
  Weight: 80 kg

DRUGS (6)
  1. SOLIRIS [Suspect]
     Active Substance: ECULIZUMAB
     Dosage: 900 MG, Q2W
     Route: 042
     Dates: start: 20180327
  2. SOLIRIS [Suspect]
     Active Substance: ECULIZUMAB
     Dosage: 900 MG, Q2W
     Route: 042
     Dates: start: 20180313
  3. SOLIRIS [Suspect]
     Active Substance: ECULIZUMAB
     Dosage: UNK
     Route: 065
     Dates: start: 201911
  4. SOLIRIS [Suspect]
     Active Substance: ECULIZUMAB
     Dosage: 600 MG, QW
     Route: 042
     Dates: start: 20180220, end: 20180313
  5. SOLIRIS [Suspect]
     Active Substance: ECULIZUMAB
     Indication: PAROXYSMAL NOCTURNAL HAEMOGLOBINURIA
     Dosage: 600 MG, QW
     Route: 042
     Dates: start: 20180220, end: 20180306
  6. PENICILLIN                         /00000901/ [Concomitant]
     Active Substance: PENICILLIN G
     Indication: PRODUCT USED FOR UNKNOWN INDICATION
     Route: 065

REACTIONS (19)
  - Pneumococcal sepsis [Recovering/Resolving]
  - Pneumococcal infection [Unknown]
  - Meningococcal bacteraemia [Unknown]
  - Chills [Not Recovered/Not Resolved]
  - Hypothermia [Unknown]
  - Rash [Recovering/Resolving]
  - Vomiting [Unknown]
  - Myalgia [Unknown]
  - Dyspnoea [Recovering/Resolving]
  - Renal disorder [Recovering/Resolving]
  - Scar [Recovering/Resolving]
  - Somnolence [Not Recovered/Not Resolved]
  - Pyrexia [Not Recovered/Not Resolved]
  - Headache [Unknown]
  - Anaemia [Not Recovered/Not Resolved]
  - Meningococcal sepsis [Recovering/Resolving]
  - Diarrhoea [Unknown]
  - Keloid scar [Recovering/Resolving]
  - Malaise [Recovering/Resolving]

NARRATIVE: CASE EVENT DATE: 20190630
